FAERS Safety Report 8000518-9 (Version None)
Quarter: 2011Q4

REPORT INFORMATION
  Report Type: 
  Country: None (occurrence: None)
  Receive Date: 20111216
  Receipt Date: 20111205
  Transmission Date: 20120403
  Serious: Yes (Other)
  Sender: FDA-Public Use
  Company Number: JP-2011-12883

PATIENT
  Age: 49 Year
  Sex: Male

DRUGS (5)
  1. PLETAL [Suspect]
     Dosage: ORAL
     Route: 048
     Dates: start: 20111202
  2. URALYT (POTASSIUM CITRATE, SODIUM CITRATE ACID) [Concomitant]
  3. ANPLAG (SARPOGRELATE HYDROCHLORIDE) [Concomitant]
  4. URINORM (BENZBROMARONE) TABLET [Concomitant]
  5. CRESTOR [Concomitant]

REACTIONS (2)
  - ALTERED STATE OF CONSCIOUSNESS [None]
  - CONVULSION [None]
